FAERS Safety Report 21148947 (Version 1)
Quarter: 2022Q3

REPORT INFORMATION
  Report Type: Spontaneous
  Country: US (occurrence: US)
  Receive Date: 20220729
  Receipt Date: 20220729
  Transmission Date: 20221026
  Serious: Yes (Death, Hospitalization)
  Sender: FDA-Public Use
  Company Number: US-AMGEN-USASP2022123712

PATIENT
  Age: 75 Year
  Sex: Male

DRUGS (1)
  1. RITUXIMAB [Suspect]
     Active Substance: RITUXIMAB
     Indication: Mantle cell lymphoma
     Dosage: MAINTENANCE THERAPY
     Route: 065

REACTIONS (8)
  - Death [Fatal]
  - Adenovirus infection [Unknown]
  - Ileus [Unknown]
  - Cystitis haemorrhagic [Unknown]
  - Liver function test increased [Unknown]
  - Respiratory failure [Unknown]
  - Mental status changes [Unknown]
  - Acute kidney injury [Unknown]
